FAERS Safety Report 9870043 (Version 4)
Quarter: 2014Q4

REPORT INFORMATION
  Report Type: Spontaneous
  Country: US (occurrence: US)
  Receive Date: 20140205
  Receipt Date: 20141003
  Transmission Date: 20150529
  Serious: Yes (Hospitalization, Other)
  Sender: FDA-Public Use
  Company Number: US-009507513-1401USA014298

PATIENT
  Sex: Female
  Weight: 53.52 kg

DRUGS (5)
  1. FOSAMAX [Suspect]
     Active Substance: ALENDRONATE SODIUM
     Indication: OSTEOPENIA
     Dosage: 70 MG, QW
     Route: 048
     Dates: start: 20030502, end: 200806
  2. FOSAMAX PLUS D [Suspect]
     Active Substance: ALENDRONATE SODIUM\CHOLECALCIFEROL
     Indication: OSTEOPENIA
  3. FOSAMAX PLUS D [Suspect]
     Active Substance: ALENDRONATE SODIUM\CHOLECALCIFEROL
     Indication: OSTEOPOROSIS
     Dosage: 70MG/2800IU, QW
     Route: 048
     Dates: start: 20070603, end: 201104
  4. ALENDRONATE SODIUM. [Suspect]
     Active Substance: ALENDRONATE SODIUM
     Indication: OSTEOPOROSIS
     Dosage: 70 MG, QW
     Route: 048
     Dates: start: 20080623, end: 20121012
  5. FOSAMAX [Suspect]
     Active Substance: ALENDRONATE SODIUM
     Indication: OSTEOPOROSIS
     Dosage: 10 MG, QD
     Route: 048
     Dates: start: 1996, end: 200806

REACTIONS (40)
  - Ankle fracture [Unknown]
  - Ankle fracture [Unknown]
  - Osteoarthritis [Unknown]
  - Anaemia [Unknown]
  - Alopecia [Unknown]
  - Rib fracture [Unknown]
  - Essential hypertension [Unknown]
  - Dermatitis contact [Unknown]
  - Hyponatraemia [Unknown]
  - Tinnitus [Unknown]
  - Nail disorder [Unknown]
  - Uterine dilation and curettage [Unknown]
  - Goitre [Unknown]
  - Back pain [Unknown]
  - Vomiting [Unknown]
  - Bone graft [Unknown]
  - Atelectasis [Unknown]
  - Pulmonary oedema [Unknown]
  - Hypokalaemia [Unknown]
  - Varicella [Unknown]
  - Lung infiltration [Unknown]
  - Femur fracture [Unknown]
  - Biopsy breast [Unknown]
  - Biopsy breast [Unknown]
  - Low turnover osteopathy [Unknown]
  - Stress [Unknown]
  - Blood cholesterol increased [Unknown]
  - Pleural effusion [Unknown]
  - Intramedullary rod insertion [Unknown]
  - Deafness [Unknown]
  - Hypothyroidism [Unknown]
  - Foot fracture [Unknown]
  - Dry mouth [Unknown]
  - Hypocalcaemia [Unknown]
  - Nausea [Unknown]
  - Fibroadenoma of breast [Unknown]
  - Vitamin D deficiency [Unknown]
  - Thyroid neoplasm [Unknown]
  - Cardiac murmur [Unknown]
  - Dizziness [Unknown]

NARRATIVE: CASE EVENT DATE: 1999
